FAERS Safety Report 10784706 (Version 1)
Quarter: 2015Q1

REPORT INFORMATION
  Report Type: Spontaneous
  Country: FR (occurrence: None)
  Receive Date: 20150209
  Receipt Date: 20150209
  Transmission Date: 20150721
  Serious: Yes (Other)
  Sender: FDA-Public Use
  Company Number: NL01PV15_38437

PATIENT
  Age: 70 Year
  Sex: Male

DRUGS (1)
  1. TAMSULOSINE BIOGARAN [Suspect]
     Active Substance: TAMSULOSIN
     Indication: PROSTATIC DISORDER
     Route: 048
     Dates: end: 20150122

REACTIONS (2)
  - Anuria [None]
  - Product substitution issue [None]

NARRATIVE: CASE EVENT DATE: 20150121
